FAERS Safety Report 8817636 (Version 3)
Quarter: 2012Q4

REPORT INFORMATION
  Report Type: Report from Study
  Country: DE (occurrence: DE)
  Receive Date: 20121001
  Receipt Date: 20121214
  Transmission Date: 20130627
  Serious: Yes (Death, Hospitalization)
  Sender: FDA-Public Use
  Company Number: DE-BRISTOL-MYERS SQUIBB COMPANY-16981797

PATIENT
  Age: 69 Year
  Sex: Female
  Weight: 92.7 kg

DRUGS (7)
  1. PACLITAXEL [Suspect]
     Indication: BREAST CANCER METASTATIC
     Dosage: Last dose date-21Aug2012
     Route: 042
     Dates: start: 20120814, end: 20120830
  2. BEVACIZUMAB [Suspect]
     Indication: BREAST CANCER METASTATIC
     Dosage: last dose date 14Aug12
     Route: 042
     Dates: start: 20120814, end: 20120830
  3. CAPECITABINE [Suspect]
     Indication: BREAST CANCER METASTATIC
     Dosage: last dose date-28Aug2012
Dose 3500mg,day1-14
     Route: 048
     Dates: start: 20120815, end: 20120830
  4. CIPROFLOXACIN [Suspect]
  5. CARVEDILOL [Concomitant]
     Dates: start: 2007, end: 20120830
  6. ASS [Concomitant]
     Dates: start: 2007, end: 20120830
  7. NEOTRI [Concomitant]
     Dosage: 1 df-2 tablets.
     Dates: start: 2007, end: 20120830

REACTIONS (2)
  - Interstitial lung disease [Fatal]
  - Septic shock [Fatal]
